FAERS Safety Report 23341640 (Version 1)
Quarter: 2023Q4

REPORT INFORMATION
  Report Type: Spontaneous
  Country: NL (occurrence: NL)
  Receive Date: 20231227
  Receipt Date: 20231227
  Transmission Date: 20240110
  Serious: Yes (Disabling)
  Sender: FDA-Public Use
  Company Number: None

PATIENT

DRUGS (13)
  1. IBUPROFEN [Suspect]
     Active Substance: IBUPROFEN
     Indication: Arthralgia
     Dosage: 800 MG, QD (2 PIECES ONCE A DAY)
     Dates: start: 20231215, end: 20231216
  2. AMLODIPINE [Concomitant]
     Active Substance: AMLODIPINE BESYLATE
     Indication: Product used for unknown indication
     Dosage: 5 MG (TABLET, 5 MG (MILLIGRAM))
  3. INHIBIN (HYDROQUININE HYDROBROMIDE) [Concomitant]
     Indication: Product used for unknown indication
     Dosage: 100 MG (TABLET, 100 MG (MILLIGRAM))
  4. METOPROLOL SUCCINATE [Concomitant]
     Active Substance: METOPROLOL SUCCINATE
     Indication: Product used for unknown indication
     Dosage: 50 MG (MODIFIED-RELEASE TABLET, 50 MG (MILLIGRAM))
  5. HYDROCHLOROTHIAZIDE [Concomitant]
     Active Substance: HYDROCHLOROTHIAZIDE
     Indication: Product used for unknown indication
     Dosage: 25 MG (TABLET, 25 MG (MILLIGRAM))
  6. DAPAGLIFLOZIN [Concomitant]
     Active Substance: DAPAGLIFLOZIN
     Indication: Product used for unknown indication
     Dosage: 10 MG
  7. CLOPIDOGREL [Concomitant]
     Active Substance: CLOPIDOGREL BISULFATE
     Indication: Product used for unknown indication
     Dosage: 75 MG (TABLET, 75 MG (MILLIGRAM))
  8. SIMVASTATIN [Concomitant]
     Active Substance: SIMVASTATIN
     Indication: Product used for unknown indication
     Dosage: 40 MG (FILM-COATED TABLET, 40 MG (MILLIGRAM))
  9. FLUTICASONE FUROATE\SALMETEROL XINAFOATE [Concomitant]
     Active Substance: FLUTICASONE FUROATE\SALMETEROL XINAFOATE
     Indication: Product used for unknown indication
     Dosage: UNK (AEROSOL, 25/250 ?G/DOSE (MICROGRAMS PER DOSE))
  10. CHOLECALCIFEROL [Concomitant]
     Active Substance: CHOLECALCIFEROL
     Indication: Product used for unknown indication
     Dosage: UNK (CAPSULE, 5600 UNITS)
  11. GLICLAZIDE [Concomitant]
     Active Substance: GLICLAZIDE
     Indication: Product used for unknown indication
     Dosage: 80 MG (MODIFIED-RELEASE TABLET, 80 MG (MILLIGRAM))
  12. PANTOPRAZOLE [Concomitant]
     Active Substance: PANTOPRAZOLE
     Indication: Product used for unknown indication
     Dosage: 40 MG (GASTRO-RESISTANT TABLET, 40 MG (MILLIGRAM))
  13. LOSARTAN [Concomitant]
     Active Substance: LOSARTAN
     Indication: Product used for unknown indication
     Dosage: 100 MG (FILM-COATED TABLET, 100 MG (MILLIGRAM))

REACTIONS (1)
  - Visual impairment [Not Recovered/Not Resolved]
